FAERS Safety Report 9452900 (Version 3)
Quarter: 2013Q3

REPORT INFORMATION
  Report Type: Spontaneous
  Country: FR (occurrence: FR)
  Receive Date: 20130812
  Receipt Date: 20130828
  Transmission Date: 20140515
  Serious: Yes (Hospitalization)
  Sender: FDA-Public Use
  Company Number: FR-PFIZER INC-2013231845

PATIENT
  Age: 72 Year
  Sex: Male

DRUGS (8)
  1. CORDARONE [Suspect]
     Indication: ATRIAL FIBRILLATION
     Dosage: 200 MG (ONE TABLET), 1X/DAY
     Route: 048
  2. OMEXEL LP [Interacting]
     Indication: BENIGN PROSTATIC HYPERPLASIA
     Dosage: 0.4 MG, 1X/DAY (COATED TABLET DAILY)
     Route: 048
     Dates: start: 201301, end: 20130513
  3. HYTACAND [Interacting]
     Indication: CARDIOMYOPATHY
     Dosage: 1 DF, 1X/DAY
     Route: 048
     Dates: end: 20130514
  4. BURINEX [Interacting]
     Indication: CARDIOMYOPATHY
     Dosage: 5 MG, 1X/DAY (ONE TABLET DAILY)
     Route: 048
     Dates: end: 20130514
  5. TEMERIT [Interacting]
     Indication: CARDIOMYOPATHY
     Dosage: 5 MG, 1X/DAY
     Route: 048
     Dates: end: 20130513
  6. LEVOTHYROX [Concomitant]
     Indication: HYPOTHYROIDISM
     Dosage: UNK
  7. PREVISCAN [Concomitant]
     Indication: ATRIAL FIBRILLATION
     Dosage: UNK
  8. MOPRAL [Concomitant]
     Dosage: UNK

REACTIONS (7)
  - Drug interaction [Recovered/Resolved]
  - Syncope [Recovered/Resolved]
  - Monoparesis [Recovered/Resolved]
  - Dysaesthesia [Recovered/Resolved]
  - Bradycardia [Recovered/Resolved]
  - Hypotension [Recovered/Resolved]
  - Fall [Recovered/Resolved]
